FAERS Safety Report 9515858 (Version 1)
Quarter: 2013Q3

REPORT INFORMATION
  Report Type: Spontaneous
  Country: JP (occurrence: None)
  Receive Date: 20130909
  Receipt Date: 20130909
  Transmission Date: 20140515
  Serious: Yes (Hospitalization)
  Sender: FDA-Public Use
  Company Number: CO-OR-JP-2013-046

PATIENT
  Age: 56 Year
  Sex: Male

DRUGS (2)
  1. PREDNISOLONE (PREDNISOLONE) [Suspect]
     Indication: ERYTHEMA MULTIFORME
     Route: 048
  2. BETAMETHASONE [Suspect]
     Indication: ERYTHEMA MULTIFORME
     Route: 048

REACTIONS (2)
  - Pemphigus [None]
  - Erythema multiforme [None]
